FAERS Safety Report 10032836 (Version 2)
Quarter: 2014Q1

REPORT INFORMATION
  Report Type: Spontaneous
  Country: RU (occurrence: RU)
  Receive Date: 20140324
  Receipt Date: 20140326
  Transmission Date: 20141002
  Serious: Yes (Other)
  Sender: FDA-Public Use
  Company Number: RU-PFIZER INC-2014079549

PATIENT
  Age: 65 Year
  Sex: Female

DRUGS (2)
  1. LIPRIMAR [Suspect]
     Indication: HYPERLIPIDAEMIA
     Dosage: 20 MG, DAILY
     Route: 048
     Dates: start: 201311, end: 201311
  2. OMACOR [Concomitant]
     Indication: HYPERLIPIDAEMIA
     Dosage: 1 G, DAILY
     Dates: start: 201311

REACTIONS (1)
  - Angina pectoris [Recovered/Resolved]
